FAERS Safety Report 9371640 (Version 1)
Quarter: 2013Q2

REPORT INFORMATION
  Report Type: Spontaneous
  Country: US (occurrence: None)
  Receive Date: 20130626
  Receipt Date: 20130626
  Transmission Date: 20140414
  Serious: No
  Sender: FDA-Public Use
  Company Number: None

PATIENT
  Age: 67 Year
  Sex: Male

DRUGS (1)
  1. XELODA [Suspect]
     Dosage: 1500 MG  2 TIMES A DAY  BY MOUTH
     Route: 048
     Dates: start: 20130531, end: 20130614

REACTIONS (2)
  - Diarrhoea [None]
  - Weight decreased [None]
